FAERS Safety Report 9053320 (Version 3)
Quarter: 2013Q2

REPORT INFORMATION
  Report Type: Spontaneous
  Country: CH (occurrence: CH)
  Receive Date: 20130207
  Receipt Date: 20130523
  Transmission Date: 20140414
  Serious: Yes (Death, Life-Threatening, Hospitalization, Other)
  Sender: FDA-Public Use
  Company Number: CH-009507513-1302CHE002496

PATIENT
  Age: 62 Year
  Sex: Female
  Weight: 68 kg

DRUGS (1)
  1. JANUMET [Suspect]
     Indication: DIABETES MELLITUS
     Dosage: 100/1000 MG, BID
     Route: 048
     Dates: start: 201207, end: 201301

REACTIONS (2)
  - Pancreatic carcinoma [Fatal]
  - Jaundice [Fatal]
